FAERS Safety Report 13018375 (Version 1)
Quarter: 2016Q4

REPORT INFORMATION
  Report Type: Spontaneous
  Country: FR (occurrence: FR)
  Receive Date: 20161212
  Receipt Date: 20161212
  Transmission Date: 20170207
  Serious: Yes (Other)
  Sender: FDA-Public Use
  Company Number: FR-JNJFOC-20161209506

PATIENT
  Sex: Male

DRUGS (1)
  1. TRAMADOL/PARACETAMOL [Suspect]
     Active Substance: ACETAMINOPHEN\TRAMADOL
     Indication: ARTHRITIS
     Route: 048
     Dates: start: 2012

REACTIONS (7)
  - Paraesthesia [Unknown]
  - Respiratory disorder [Unknown]
  - Sleep disorder [Unknown]
  - Mood altered [Unknown]
  - Gamma-glutamyltransferase increased [Unknown]
  - Hypoaesthesia [Unknown]
  - Pyrexia [Unknown]

NARRATIVE: CASE EVENT DATE: 201610
